FAERS Safety Report 9790217 (Version 1)
Quarter: 2013Q4

REPORT INFORMATION
  Report Type: Report from Study
  Country: CA (occurrence: CA)
  Receive Date: 20131231
  Receipt Date: 20131231
  Transmission Date: 20140711
  Serious: Yes (Other)
  Sender: FDA-Public Use
  Company Number: CA-JNJFOC-20131217625

PATIENT
  Age: 55 Year
  Sex: Male
  Weight: 87 kg

DRUGS (8)
  1. REMICADE [Suspect]
     Indication: COLITIS ULCERATIVE
     Dosage: 52 WEEKS
     Route: 042
     Dates: start: 20080507
  2. REMICADE [Suspect]
     Indication: COLITIS ULCERATIVE
     Route: 042
     Dates: start: 20131223
  3. GLYBURIDE [Concomitant]
     Dosage: 10
     Route: 065
  4. RAMIPRIL [Concomitant]
     Dosage: 10 POST ORAL DAILY
     Route: 048
  5. LASIX [Concomitant]
     Route: 065
  6. CRESTOR [Concomitant]
     Route: 065
  7. METFORMIN [Concomitant]
     Dosage: 500 BID 2 TABLETS
     Route: 065
  8. METFORMIN [Concomitant]
     Dosage: 1 GRAM BID
     Route: 065

REACTIONS (1)
  - Dermatitis herpetiformis [Not Recovered/Not Resolved]
